FAERS Safety Report 12546908 (Version 1)
Quarter: 2016Q3

REPORT INFORMATION
  Report Type: Report from Study
  Country: BR (occurrence: BR)
  Receive Date: 20160711
  Receipt Date: 20160711
  Transmission Date: 20161109
  Serious: Yes (Death, Hospitalization)
  Sender: FDA-Public Use
  Company Number: PHHY2016BR092736

PATIENT
  Sex: Male
  Weight: 77 kg

DRUGS (3)
  1. FORASEQ [Suspect]
     Active Substance: BUDESONIDE\FORMOTEROL FUMARATE
     Indication: EMPHYSEMA
     Dosage: UNK (1 WHITE CAPSULE,1 PINK CAPSULE, TOTAL OF 6 CAPSULES A DAY), TID
     Route: 055
  2. BEROTEC [Concomitant]
     Active Substance: FENOTEROL HYDROBROMIDE
     Indication: PRODUCT USED FOR UNKNOWN INDICATION
     Route: 055
  3. ATROVENT [Concomitant]
     Active Substance: IPRATROPIUM BROMIDE
     Indication: PRODUCT USED FOR UNKNOWN INDICATION
     Route: 055

REACTIONS (4)
  - Cardio-respiratory arrest [Fatal]
  - Incorrect dose administered [Unknown]
  - Cardiac failure [Fatal]
  - Dyspnoea [Unknown]
